FAERS Safety Report 12617975 (Version 1)
Quarter: 2016Q3

REPORT INFORMATION
  Report Type: Spontaneous
  Country: US (occurrence: US)
  Receive Date: 20160803
  Receipt Date: 20160803
  Transmission Date: 20161109
  Serious: No
  Sender: FDA-Public Use
  Company Number: US-VERTEX PHARMACEUTICALS-2016-004603

PATIENT
  Sex: Female

DRUGS (6)
  1. KALYDECO [Suspect]
     Active Substance: IVACAFTOR
     Indication: CYSTIC FIBROSIS
     Dosage: 150 MG, BID
     Route: 048
     Dates: start: 201507
  2. CAYSTON [Concomitant]
     Active Substance: AZTREONAM
  3. TOBRAMYCIN. [Concomitant]
     Active Substance: TOBRAMYCIN
  4. RESTORIL [Concomitant]
     Active Substance: TEMAZEPAM
     Dosage: 30 MG, UNK
     Route: 048
  5. PULMOZYME [Concomitant]
     Active Substance: DORNASE ALFA
  6. HYPERTONIC SALINE [Concomitant]
     Active Substance: SODIUM CHLORIDE

REACTIONS (2)
  - Somnolence [Unknown]
  - Influenza like illness [Unknown]
